FAERS Safety Report 11931323 (Version 1)
Quarter: 2016Q1

REPORT INFORMATION
  Report Type: Spontaneous
  Country: US (occurrence: US)
  Receive Date: 20160120
  Receipt Date: 20160120
  Transmission Date: 20160526
  Serious: Yes (Other)
  Sender: FDA-Public Use
  Company Number: US-INCYTE CORPORATION-2015IN004292

PATIENT
  Age: 85 Year
  Sex: Female
  Weight: 58.51 kg

DRUGS (1)
  1. JAKAFI [Suspect]
     Active Substance: RUXOLITINIB
     Indication: POLYCYTHAEMIA VERA
     Dosage: 10 MG, BID
     Route: 048
     Dates: start: 20150615

REACTIONS (3)
  - Thrombocytopenia [Recovering/Resolving]
  - Contusion [Recovering/Resolving]
  - Hypersplenism [Recovering/Resolving]

NARRATIVE: CASE EVENT DATE: 20150827
